FAERS Safety Report 5228060-9 (Version None)
Quarter: 2007Q1

REPORT INFORMATION
  Report Type: 
  Country: None (occurrence: None)
  Receive Date: 20061201
  Receipt Date: 20060927
  Transmission Date: 20070707
  Serious: No
  Sender: FDA-Public Use
  Company Number: US200609006843

PATIENT
  Age: 54 Year
  Sex: Female

DRUGS (7)
  1. ALIMTA [Suspect]
     Indication: NON-SMALL CELL LUNG CANCER
     Dosage: INTRAVENOUS
     Route: 042
     Dates: start: 20060301
  2. ANTIHYPERTENSIVES [Concomitant]
  3. ANTI-ASTHMATICS [Concomitant]
  4. FOLIC ACID [Concomitant]
  5. VITAMIN B12 [Concomitant]
  6. DEXAMETHASONE TAB [Concomitant]
  7. VICODIN [Concomitant]

REACTIONS (1)
  - NEURALGIA [None]
